FAERS Safety Report 6731285-4 (Version None)
Quarter: 2010Q2

REPORT INFORMATION
  Report Type: 
  Country: None (occurrence: None)
  Receive Date: 20100517
  Receipt Date: 20100517
  Transmission Date: 20101027
  Serious: Yes (Other)
  Sender: FDA-Public Use
  Company Number: None

PATIENT
  Age: 28 Year
  Sex: Female
  Weight: 63.5036 kg

DRUGS (2)
  1. YAZ [Suspect]
     Indication: CONTRACEPTION
     Dosage: 1 PILL EVERY DAY PO
     Route: 048
     Dates: start: 20081001, end: 20100428
  2. YAZ [Suspect]
     Indication: PREMENSTRUAL SYNDROME
     Dosage: 1 PILL EVERY DAY PO
     Route: 048
     Dates: start: 20081001, end: 20100428

REACTIONS (1)
  - SKIN DISCOLOURATION [None]
